FAERS Safety Report 13975434 (Version 1)
Quarter: 2017Q3

REPORT INFORMATION
  Report Type: Spontaneous
  Country: US (occurrence: US)
  Receive Date: 20170914
  Receipt Date: 20170914
  Transmission Date: 20171128
  Serious: No
  Sender: FDA-Public Use
  Company Number: US-ASTELLAS-2017US005435

PATIENT
  Sex: Male

DRUGS (1)
  1. XTANDI [Suspect]
     Active Substance: ENZALUTAMIDE
     Indication: PROSTATE CANCER METASTATIC
     Dosage: 120 MG (THREE CAPSULES), ONCE DAILY
     Route: 048

REACTIONS (7)
  - Nausea [Recovered/Resolved]
  - Foreign body in respiratory tract [Recovered/Resolved]
  - Throat irritation [Recovered/Resolved]
  - Discomfort [Recovered/Resolved]
  - Underdose [Unknown]
  - Pain [Recovered/Resolved]
  - Cough [Recovered/Resolved]
